FAERS Safety Report 4588594-7 (Version None)
Quarter: 2005Q1

REPORT INFORMATION
  Report Type: 
  Country: None (occurrence: None)
  Receive Date: 20050222
  Receipt Date: 20041130
  Transmission Date: 20050727
  Serious: Yes (Hospitalization)
  Sender: FDA-Public Use
  Company Number: DE-ROCHE-387682

PATIENT
  Age: 65 Year
  Sex: Male
  Weight: 83 kg

DRUGS (13)
  1. DACLIZUMAB [Suspect]
     Route: 042
     Dates: start: 20041104
  2. MYCOPHENOLATE MOFETIL [Suspect]
     Route: 048
     Dates: start: 20041104
  3. TACROLIMUS [Suspect]
     Route: 048
     Dates: start: 20041104
  4. PREDNISOLONE [Suspect]
     Route: 048
     Dates: start: 20041104
  5. LOCOL [Concomitant]
     Route: 048
  6. L-THYROXINE [Concomitant]
     Route: 048
  7. ASPIRIN [Concomitant]
     Route: 048
  8. VALCYTE [Concomitant]
     Route: 048
  9. PANTOPRAZOLE SODIUM [Concomitant]
     Route: 048
  10. REDUCTO-SPEZIAL [Concomitant]
     Route: 048
  11. COTRIM FORTE [Concomitant]
     Route: 048
     Dates: end: 20041129
  12. DELIX [Concomitant]
     Route: 048
  13. BAYMYCARD [Concomitant]
     Route: 048

REACTIONS (2)
  - EMPYEMA [None]
  - URINARY TRACT INFECTION [None]
